FAERS Safety Report 5255003-4 (Version None)
Quarter: 2007Q1

REPORT INFORMATION
  Report Type: 
  Country: None (occurrence: None)
  Receive Date: 20070305
  Receipt Date: 20070206
  Transmission Date: 20070707
  Serious: Yes (Hospitalization)
  Sender: FDA-Public Use
  Company Number: PHBS2007ES03633

PATIENT
  Age: 24 Year
  Sex: Female

DRUGS (5)
  1. HYDRALAZINE HYDROCHLORIDE [Suspect]
     Indication: HYPERTENSION
  2. LABETALOL HCL [Suspect]
     Route: 048
  3. METHYLDOPA [Suspect]
  4. ETANERCEPT [Suspect]
     Dosage: 50 MG, QW
  5. IMMUNE GLOBULIN INTRAVENOUS (HUMAN) [Suspect]

REACTIONS (4)
  - CAESAREAN SECTION [None]
  - DRUG EXPOSURE DURING PREGNANCY [None]
  - NORMAL NEWBORN [None]
  - PREMATURE BABY [None]
